FAERS Safety Report 9471028 (Version 3)
Quarter: 2013Q4

REPORT INFORMATION
  Report Type: Spontaneous
  Country: FR (occurrence: FR)
  Receive Date: 20130822
  Receipt Date: 20131002
  Transmission Date: 20140711
  Serious: Yes (Death)
  Sender: FDA-Public Use
  Company Number: FR-B.I. PHARMACEUTICALS,INC./RIDGEFIELD-2013-FF-02122FF

PATIENT
  Age: 72 Year
  Sex: Male

DRUGS (14)
  1. PRADAXA [Suspect]
     Indication: ATRIAL FIBRILLATION
     Dosage: 220 MG
     Route: 048
     Dates: end: 20130614
  2. PRADAXA [Suspect]
     Dosage: 110 MG
     Route: 048
     Dates: start: 20130620, end: 20130620
  3. LOVENOX [Suspect]
     Indication: ATRIAL FIBRILLATION
     Dosage: 0.6 ML
     Route: 058
     Dates: start: 20130620, end: 20130620
  4. CORTANCYL [Concomitant]
     Indication: TEMPORAL ARTERITIS
     Dosage: 17.5 MG
     Route: 048
  5. INEXIUM [Concomitant]
     Route: 048
  6. XATRAL [Concomitant]
     Route: 048
  7. KALEORID [Concomitant]
     Route: 048
  8. BRONCHODUAL [Concomitant]
     Route: 055
  9. CACIT VITAMINE D3 [Concomitant]
     Route: 048
  10. AZOPT [Concomitant]
     Dosage: 10MG/ML
     Route: 031
  11. TRAVATAN [Concomitant]
     Dosage: 40MICROG/ML
     Route: 031
  12. APROVEL [Concomitant]
     Route: 048
  13. ZOLPIDEM [Concomitant]
     Route: 048
  14. FLIXOTIDE [Concomitant]
     Route: 055

REACTIONS (5)
  - Overdose [Fatal]
  - Haemorrhage [Fatal]
  - Haematuria [Fatal]
  - Anaemia [Fatal]
  - Shock haemorrhagic [Fatal]
